FAERS Safety Report 15552055 (Version 2)
Quarter: 2019Q3

REPORT INFORMATION
  Report Type: Report from Study
  Country: JP (occurrence: JP)
  Receive Date: 20181025
  Receipt Date: 20190829
  Transmission Date: 20191004
  Serious: Yes (Other)
  Sender: FDA-Public Use
  Company Number: JP-ACTELION-A-CH2018-180694

PATIENT
  Age: 3 Year
  Sex: Male

DRUGS (9)
  1. BIOFERMIN [Concomitant]
     Active Substance: DIETARY SUPPLEMENT\PROBIOTICS
  2. TAKEPRON [Concomitant]
     Active Substance: LANSOPRAZOLE
  3. MAGNESIUM OXIDE. [Concomitant]
     Active Substance: MAGNESIUM OXIDE
  4. WARFARIN [Concomitant]
     Active Substance: WARFARIN
  5. OPSUMIT [Suspect]
     Active Substance: MACITENTAN
     Dosage: 1.4 MG, QD
     Route: 048
     Dates: start: 20170526, end: 20170527
  6. CARBOCISTEINE [Concomitant]
     Active Substance: CARBOCYSTEINE
  7. OPSUMIT [Suspect]
     Active Substance: MACITENTAN
     Indication: PULMONARY ARTERIAL HYPERTENSION
     Dosage: 2.8 MG, QD
     Route: 048
     Dates: start: 20170528
  8. PULSMARIN A [Concomitant]
     Active Substance: AMBROXOL HYDROCHLORIDE
  9. ADCIRCA [Concomitant]
     Active Substance: TADALAFIL

REACTIONS (3)
  - Anaemia [Recovered/Resolved]
  - Aspartate aminotransferase increased [Recovered/Resolved]
  - Platelet count decreased [Recovered/Resolved]

NARRATIVE: CASE EVENT DATE: 20170720
